FAERS Safety Report 8531489-4 (Version None)
Quarter: 2012Q2

REPORT INFORMATION
  Report Type: 
  Country: None (occurrence: None)
  Receive Date: 20120412
  Receipt Date: 20100928
  Transmission Date: 20120825
  Serious: Yes (Life-Threatening)
  Sender: FDA-Public Use
  Company Number: PHHY2010US59738

PATIENT
  Age: 65 Year
  Sex: Female

DRUGS (1)
  1. CATAFLAM [Suspect]
     Dosage: ORAL
     Route: 048

REACTIONS (8)
  - TONGUE OEDEMA [None]
  - TRACHEAL OEDEMA [None]
  - ANAPHYLACTIC REACTION [None]
  - OROPHARYNGEAL SWELLING [None]
  - ASTHMA [None]
  - OEDEMA MOUTH [None]
  - BRONCHIAL OEDEMA [None]
  - LARYNGEAL OEDEMA [None]
